FAERS Safety Report 11062963 (Version 1)
Quarter: 2015Q2

REPORT INFORMATION
  Report Type: Spontaneous
  Country: US (occurrence: US)
  Receive Date: 20150424
  Receipt Date: 20150424
  Transmission Date: 20150821
  Serious: No
  Sender: FDA-Public Use
  Company Number: US-ALKERMES INC.-ALK-2014-003137

PATIENT

DRUGS (2)
  1. VIVITROL [Suspect]
     Active Substance: NALTREXONE
     Indication: DRUG DEPENDENCE
     Dosage: 380 MG, UNK
  2. KAPVAY [Concomitant]
     Active Substance: CLONIDINE HYDROCHLORIDE
     Indication: ATTENTION DEFICIT/HYPERACTIVITY DISORDER
     Dosage: 0.1 MG, TID
     Dates: start: 201212, end: 201304

REACTIONS (4)
  - Off label use [Unknown]
  - Medication error [Unknown]
  - Depressed mood [Unknown]
  - Dependence [Unknown]

NARRATIVE: CASE EVENT DATE: 201212
